FAERS Safety Report 7800554-9 (Version None)
Quarter: 2011Q4

REPORT INFORMATION
  Report Type: 
  Country: None (occurrence: None)
  Receive Date: 20111006
  Receipt Date: 20110929
  Transmission Date: 20120403
  Serious: Yes (Hospitalization, Disabling)
  Sender: FDA-Public Use
  Company Number: NO-PFIZER INC-2011233298

PATIENT
  Sex: Female

DRUGS (4)
  1. DIANE [Suspect]
     Indication: HIRSUTISM
     Dosage: UNK
     Dates: start: 20000101
  2. DEPO-PROVERA [Suspect]
     Indication: POLYCYSTIC OVARIES
  3. DEPO-PROVERA [Suspect]
     Indication: OFF LABEL USE
     Dosage: 1 DF, ONLY ONE DOSE TAKEN
     Dates: start: 20000101
  4. DIANE [Suspect]
     Indication: ACNE

REACTIONS (3)
  - ACNE [None]
  - HIRSUTISM [None]
  - MAJOR DEPRESSION [None]
